FAERS Safety Report 11713718 (Version 1)
Quarter: 2015Q4

REPORT INFORMATION
  Report Type: Spontaneous
  Country: US (occurrence: US)
  Receive Date: 20151109
  Receipt Date: 20151109
  Transmission Date: 20160304
  Serious: No
  Sender: FDA-Public Use
  Company Number: US-BAYER-2015-463145

PATIENT
  Age: 67 Year
  Sex: Female
  Weight: 50.79 kg

DRUGS (2)
  1. MIRALAX [Suspect]
     Active Substance: POLYETHYLENE GLYCOL 3350
     Dosage: 1 DOSE THREE TIMES A WEEK.
     Route: 048
     Dates: start: 2005
  2. CALTRATE WITH VITAMIN D [Concomitant]
     Active Substance: CALCIUM CARBONATE\CHOLECALCIFEROL
     Dosage: UNK

REACTIONS (2)
  - Off label use [None]
  - Osteoporosis [None]

NARRATIVE: CASE EVENT DATE: 2005
